FAERS Safety Report 5134109-4 (Version None)
Quarter: 2006Q4

REPORT INFORMATION
  Report Type: 
  Country: None (occurrence: None)
  Receive Date: 20061024
  Receipt Date: 20061012
  Transmission Date: 20070319
  Serious: Yes (Hospitalization)
  Sender: FDA-Public Use
  Company Number: CG-MERCK-0610USA10132

PATIENT
  Age: 28 Year
  Sex: Female

DRUGS (1)
  1. STROMECTOL [Suspect]
     Route: 048
     Dates: start: 20060707, end: 20060707

REACTIONS (2)
  - LOSS OF CONSCIOUSNESS [None]
  - OCULAR HYPERAEMIA [None]
